FAERS Safety Report 4319335-6 (Version None)
Quarter: 2004Q1

REPORT INFORMATION
  Report Type: 
  Country: None (occurrence: None)
  Receive Date: 20040316
  Receipt Date: 20040304
  Transmission Date: 20041129
  Serious: No
  Sender: FDA-Public Use
  Company Number: 2004GB00561

PATIENT
  Sex: 0

DRUGS (1)
  1. SEROQUEL [Suspect]
     Dosage: OVER THE 750 MG BNF GUIDE

REACTIONS (1)
  - NEUTROPENIA [None]
